FAERS Safety Report 23867967 (Version 1)
Quarter: 2024Q2

REPORT INFORMATION
  Report Type: Spontaneous
  Country: US (occurrence: US)
  Receive Date: 20240517
  Receipt Date: 20240517
  Transmission Date: 20240716
  Serious: Yes (Life-Threatening, Hospitalization, Other)
  Sender: FDA-Public Use
  Company Number: US-CPL-004216

PATIENT
  Age: 89 Year
  Sex: Female

DRUGS (17)
  1. VENLAFAXINE [Suspect]
     Active Substance: VENLAFAXINE HYDROCHLORIDE
     Indication: Product used for unknown indication
     Dosage: DAILY
  2. OXYCODONE [Suspect]
     Active Substance: OXYCODONE\OXYCODONE HYDROCHLORIDE
     Indication: Product used for unknown indication
     Dosage: PRN (AS NEEDED)
  3. BUMETANIDE [Concomitant]
     Active Substance: BUMETANIDE
     Dosage: BID
  4. ASPIRIN [Concomitant]
     Active Substance: ASPIRIN
  5. ATORVASTATIN [Concomitant]
     Active Substance: ATORVASTATIN
     Dosage: QHS (EVERY NIGHT)
  6. CLOPIDOGREL [Concomitant]
     Active Substance: CLOPIDOGREL BISULFATE
     Dosage: DAILY
  7. DOXAZOSIN [Concomitant]
     Active Substance: DOXAZOSIN MESYLATE
     Dosage: DAILY
  8. NIFEDIPINE [Concomitant]
     Active Substance: NIFEDIPINE
     Dosage: DAILY
  9. SPIRIVA [Concomitant]
     Active Substance: TIOTROPIUM BROMIDE MONOHYDRATE
     Dosage: 1 PUFF DAILY
  10. NOVOLOG [Concomitant]
     Active Substance: INSULIN ASPART
     Dosage: 7 UNITS
  11. LANTUS [Concomitant]
     Active Substance: INSULIN GLARGINE
     Dosage: 17 UNITS DAILY
  12. ALBUTEROL\IPRATROPIUM [Concomitant]
     Active Substance: ALBUTEROL\IPRATROPIUM
     Dosage: PRN (AS NEEDED)
  13. ACETAMINOPHEN\HYDROCODONE [Concomitant]
     Active Substance: ACETAMINOPHEN\HYDROCODONE
     Dosage: DAILY
  14. LOSARTAN [Concomitant]
     Active Substance: LOSARTAN
     Dosage: BID
  15. MEGESTROL [Concomitant]
     Active Substance: MEGESTROL
     Dosage: 40 MG/ML DAILY
  16. MEMANTINE [Concomitant]
     Active Substance: MEMANTINE
     Dosage: QHS (EVERY NIGHT)
  17. TRIAMCINOLONE [Concomitant]
     Active Substance: TRIAMCINOLONE
     Dosage: 0.10% PRN (AS NEEDED)
     Route: 061

REACTIONS (2)
  - Serotonin syndrome [Not Recovered/Not Resolved]
  - Encephalopathy [Not Recovered/Not Resolved]
